FAERS Safety Report 23332849 (Version 1)
Quarter: 2023Q4

REPORT INFORMATION
  Report Type: Spontaneous
  Country: DE (occurrence: DE)
  Receive Date: 20231222
  Receipt Date: 20231222
  Transmission Date: 20240109
  Serious: Yes (Other)
  Sender: FDA-Public Use
  Company Number: DE-SA-SAC20231218001634

PATIENT
  Age: 7 Year
  Sex: Male

DRUGS (4)
  1. LIBTAYO [Suspect]
     Active Substance: CEMIPLIMAB-RWLC
     Indication: Product used for unknown indication
     Dosage: UNK
     Route: 065
  2. BEPANTHENOL [Concomitant]
     Indication: Product used for unknown indication
     Dosage: UNK
  3. VERMOX [Concomitant]
     Active Substance: MEBENDAZOLE
     Indication: Product used for unknown indication
     Dosage: 100MG 0-0- 1
  4. CETIRIZINE [Concomitant]
     Active Substance: CETIRIZINE HYDROCHLORIDE
     Indication: Product used for unknown indication
     Dosage: UNK

REACTIONS (13)
  - Neoplasm malignant [Unknown]
  - Anaemia of malignant disease [Unknown]
  - Xeroderma pigmentosum [Unknown]
  - Lip haemorrhage [Unknown]
  - Neoplasm skin [Unknown]
  - White blood cell count increased [Unknown]
  - Wound secretion [Unknown]
  - Listless [Unknown]
  - Giardiasis [Unknown]
  - Cough [Unknown]
  - Pyrexia [Unknown]
  - Dyspnoea [Unknown]
  - Tonsillitis [Unknown]
